FAERS Safety Report 17593899 (Version 1)
Quarter: 2020Q1

REPORT INFORMATION
  Report Type: Spontaneous
  Country: US (occurrence: US)
  Receive Date: 20200327
  Receipt Date: 20200327
  Transmission Date: 20200409
  Serious: No
  Sender: FDA-Public Use
  Company Number: US-PFIZER INC-2020124024

PATIENT
  Age: 30 Year
  Sex: Female

DRUGS (1)
  1. XELJANZ [Suspect]
     Active Substance: TOFACITINIB CITRATE
     Dosage: 5 MG, UNK

REACTIONS (9)
  - Arthralgia [Unknown]
  - Hypersomnia [Unknown]
  - Diarrhoea [Unknown]
  - Rhinorrhoea [Unknown]
  - Fatigue [Unknown]
  - Depression [Unknown]
  - Malaise [Unknown]
  - Gait disturbance [Unknown]
  - Joint swelling [Unknown]
